FAERS Safety Report 7788030-3 (Version None)
Quarter: 2011Q3

REPORT INFORMATION
  Report Type: 
  Country: None (occurrence: None)
  Receive Date: 20110927
  Receipt Date: 20110913
  Transmission Date: 20111222
  Serious: Yes (Other)
  Sender: FDA-Public Use
  Company Number: JP-2011-11519

PATIENT
  Age: 78 Year
  Sex: Male

DRUGS (3)
  1. NOVOLOG [Concomitant]
  2. CILOSTAZOL [Suspect]
     Indication: PERIPHERAL ARTERIAL OCCLUSIVE DISEASE
     Dosage: 50 MG MILLIGRAM(S), BID, ORAL
     Route: 048
     Dates: start: 20110820, end: 20110822
  3. CILOSTAZOL [Suspect]
     Indication: CEREBRAL INFARCTION
     Dosage: 50 MG MILLIGRAM(S), BID, ORAL
     Route: 048
     Dates: start: 20110820, end: 20110822

REACTIONS (2)
  - HYPERTENSION [None]
  - COMA [None]
